FAERS Safety Report 9636427 (Version 11)
Quarter: 2014Q3

REPORT INFORMATION
  Report Type: Report from Study
  Country: US (occurrence: US)
  Receive Date: 20131021
  Receipt Date: 20140815
  Transmission Date: 20150326
  Serious: Yes (Hospitalization, Other)
  Sender: FDA-Public Use
  Company Number: US-ACTELION-A-US2013-89276

PATIENT
  Age: 45 Year
  Sex: Female

DRUGS (6)
  1. VELETRI [Suspect]
     Active Substance: EPOPROSTENOL
     Dosage: 25 NG/KG, UNK
     Route: 042
     Dates: start: 20130516
  2. TYVASO [Concomitant]
     Active Substance: TREPROSTINIL
  3. TRACLEER [Suspect]
     Active Substance: BOSENTAN\BOSENTAN MONOHYDRATE
     Indication: PULMONARY ARTERIAL HYPERTENSION
     Dosage: UNK
     Route: 048
  4. CHLORAPREP [Suspect]
     Active Substance: CHLORHEXIDINE GLUCONATE\ISOPROPYL ALCOHOL
     Indication: PRODUCT USED FOR UNKNOWN INDICATION
     Route: 048
  5. VELETRI [Suspect]
     Active Substance: EPOPROSTENOL
     Indication: PULMONARY ARTERIAL HYPERTENSION
     Dosage: 18 NG/KG, PER MIN
     Route: 042
     Dates: start: 20130515
  6. RIOCIGUAT [Concomitant]
     Active Substance: RIOCIGUAT
     Dosage: UNK, TID

REACTIONS (19)
  - Haemorrhage [Unknown]
  - Epistaxis [Unknown]
  - Blood count abnormal [Unknown]
  - Catheter site swelling [Unknown]
  - Dyspnoea exertional [Unknown]
  - Fatigue [Unknown]
  - Hepatic embolisation [Unknown]
  - Hepatic haemorrhage [Unknown]
  - Condition aggravated [Unknown]
  - Liver disorder [Unknown]
  - Hepatic enzyme increased [Unknown]
  - Dizziness [Unknown]
  - Headache [Unknown]
  - Transfusion [Unknown]
  - Hypertension [Unknown]
  - Feeling abnormal [Unknown]
  - Nausea [Unknown]
  - Arteriovenous malformation [Unknown]
  - Catheter site inflammation [Unknown]

NARRATIVE: CASE EVENT DATE: 20140307
